FAERS Safety Report 4330709-X (Version None)
Quarter: 2004Q1

REPORT INFORMATION
  Report Type: 
  Country: None (occurrence: None)
  Receive Date: 20040329
  Receipt Date: 20040308
  Transmission Date: 20041129
  Serious: Yes (Other)
  Sender: FDA-Public Use
  Company Number: SUSI-2004-00143

PATIENT
  Sex: Female

DRUGS (1)
  1. CARBATROL [Suspect]
     Indication: CONVULSION

REACTIONS (3)
  - CONCUSSION [None]
  - CONVULSION [None]
  - FALL [None]
